FAERS Safety Report 19389950 (Version 3)
Quarter: 2021Q4

REPORT INFORMATION
  Report Type: Spontaneous
  Country: US (occurrence: US)
  Receive Date: 20210608
  Receipt Date: 20211020
  Transmission Date: 20220303
  Serious: No
  Sender: FDA-Public Use
  Company Number: US-CELGENE-USA-20210601047

PATIENT
  Age: 57 Year
  Sex: Female

DRUGS (1)
  1. ZEPOSIA [Suspect]
     Active Substance: OZANIMOD HYDROCHLORIDE
     Indication: Multiple sclerosis
     Dosage: .92 MILLIGRAM
     Route: 048
     Dates: start: 20210504, end: 20210907

REACTIONS (4)
  - Palpitations [Unknown]
  - Memory impairment [Unknown]
  - Limb discomfort [Unknown]
  - Liver disorder [Unknown]

NARRATIVE: CASE EVENT DATE: 20210511
